FAERS Safety Report 4353517-2 (Version None)
Quarter: 2004Q2

REPORT INFORMATION
  Report Type: 
  Country: None (occurrence: None)
  Receive Date: 20040505
  Receipt Date: 20040416
  Transmission Date: 20050107
  Serious: Yes (Hospitalization)
  Sender: FDA-Public Use
  Company Number: IT-ROCHE-364736

PATIENT
  Age: 67 Year
  Sex: Male
  Weight: 78 kg

DRUGS (4)
  1. CAPECITABINE [Suspect]
     Dosage: 2 WEEKS THERAPY FOLLOWED BY ONE WEEKS REST.
     Route: 048
     Dates: start: 20040414
  2. OXALIPLATIN [Suspect]
     Route: 042
     Dates: start: 20040414
  3. RAMIPRIL [Concomitant]
     Dates: start: 20030615
  4. HYDROCHLOROTHIAZIDE [Concomitant]
     Dates: start: 20030615

REACTIONS (1)
  - PYELOTOMY [None]
